FAERS Safety Report 11593070 (Version 14)
Quarter: 2021Q4

REPORT INFORMATION
  Report Type: Report from Study
  Country: JP (occurrence: JP)
  Receive Date: 20151005
  Receipt Date: 20211220
  Transmission Date: 20220303
  Serious: Yes (Other)
  Sender: FDA-Public Use
  Company Number: JP-PFIZER INC-2015327688

PATIENT
  Age: 6 Month
  Sex: Male
  Weight: 3.09 kg

DRUGS (15)
  1. SIROLIMUS [Suspect]
     Active Substance: SIROLIMUS
     Indication: Haemangioma-thrombocytopenia syndrome
     Dosage: 0.8 MG/M^2 BID
     Route: 048
     Dates: start: 201410
  2. SIROLIMUS [Suspect]
     Active Substance: SIROLIMUS
     Indication: Lymphangioleiomyomatosis
     Dosage: 0.52 MG, 1X/DAY
     Route: 048
     Dates: start: 20150617, end: 20150726
  3. SIROLIMUS [Suspect]
     Active Substance: SIROLIMUS
     Dosage: 1 MG, 1X/DAY
     Route: 048
     Dates: start: 20150701, end: 20150819
  4. SIROLIMUS [Suspect]
     Active Substance: SIROLIMUS
     Dosage: 1.7 MG, 1X/DAY
     Route: 048
     Dates: start: 20150819, end: 20150825
  5. SIROLIMUS [Suspect]
     Active Substance: SIROLIMUS
     Dosage: 0.7 MG, 1X/DAY
     Route: 048
     Dates: start: 20150819, end: 20150917
  6. SIROLIMUS [Suspect]
     Active Substance: SIROLIMUS
     Dosage: 1.2 MG, 1X/DAY
     Route: 048
     Dates: start: 20150917, end: 20150928
  7. SIROLIMUS [Suspect]
     Active Substance: SIROLIMUS
     Dosage: 0.5 MG, 1X/DAY
     Route: 048
     Dates: start: 20150917, end: 20151222
  8. SIROLIMUS [Suspect]
     Active Substance: SIROLIMUS
     Dosage: 0.25 MG, 1X/DAY
     Route: 048
     Dates: start: 20151222, end: 20160105
  9. INDERAL [Suspect]
     Active Substance: PROPRANOLOL HYDROCHLORIDE
     Indication: Haemangioma-thrombocytopenia syndrome
     Dosage: UNK
     Route: 048
     Dates: end: 20150710
  10. PREDNISOLONE [Suspect]
     Active Substance: PREDNISOLONE
     Indication: Haemangioma-thrombocytopenia syndrome
     Dosage: UNK
     Route: 048
     Dates: end: 20150911
  11. PREDNISOLONE [Suspect]
     Active Substance: PREDNISOLONE
     Indication: Lymphangioleiomyomatosis
  12. ASPIRIN [Suspect]
     Active Substance: ASPIRIN
     Indication: Haemangioma-thrombocytopenia syndrome
     Dosage: UNK
     Route: 048
     Dates: end: 20150708
  13. ASPIRIN [Suspect]
     Active Substance: ASPIRIN
     Indication: Lymphangioleiomyomatosis
  14. FERRIC PYROPHOSPHATE [Suspect]
     Active Substance: FERRIC PYROPHOSPHATE
     Dosage: UNK
     Route: 048
     Dates: end: 20150708
  15. VINCRISTINE SULFATE [Concomitant]
     Active Substance: VINCRISTINE SULFATE
     Indication: Haemangioma-thrombocytopenia syndrome
     Dosage: UNK
     Route: 065
     Dates: end: 20150213

REACTIONS (6)
  - Hypogammaglobulinaemia [Recovered/Resolved]
  - Alanine aminotransferase increased [Recovered/Resolved]
  - Aspartate aminotransferase increased [Recovered/Resolved]
  - Wrong technique in product usage process [Unknown]
  - Off label use [Unknown]
  - Product administered to patient of inappropriate age [Unknown]

NARRATIVE: CASE EVENT DATE: 20150626
